FAERS Safety Report 7584538-4 (Version None)
Quarter: 2011Q2

REPORT INFORMATION
  Report Type: 
  Country: None (occurrence: None)
  Receive Date: 20110630
  Receipt Date: 20110622
  Transmission Date: 20111010
  Serious: Yes (Other)
  Sender: FDA-Public Use
  Company Number: US-PFIZER INC-2011138658

PATIENT
  Sex: Male
  Weight: 97.506 kg

DRUGS (20)
  1. SEPTRA [Concomitant]
     Indication: RENAL TRANSPLANT
     Dosage: UNK, EVERY OTHER DAY
     Route: 048
  2. NORVASC [Concomitant]
     Indication: BLOOD PRESSURE ABNORMAL
     Dosage: 5 MG, DAILY
     Route: 048
  3. COZAAR [Concomitant]
     Indication: BLOOD PRESSURE ABNORMAL
     Dosage: 50 MG, DAILY
     Route: 048
  4. TAMSULOSIN HYDROCHLORIDE [Concomitant]
     Indication: PROSTATIC DISORDER
     Dosage: 0.4 MG, DAILY
     Route: 048
  5. LASIX [Concomitant]
     Indication: DIURETIC THERAPY
     Dosage: 80 MG, 2X/DAY
     Route: 048
  6. LIPITOR [Concomitant]
     Indication: BLOOD CHOLESTEROL ABNORMAL
     Dosage: 20 MG, DAILY
     Route: 048
  7. GLIPIZIDE [Concomitant]
     Indication: DIABETES MELLITUS
     Dosage: 5 MG, DAILY
     Route: 048
  8. HUMULIN 70/30 [Concomitant]
     Indication: DIABETES MELLITUS
     Dosage: 35 IU, DAILY
  9. REGULAR INSULIN [Concomitant]
     Indication: DIABETES MELLITUS
     Dosage: 20 IU, DAILY
  10. RAPAMUNE [Suspect]
     Dosage: 3 MG, DAILY
     Route: 048
     Dates: start: 20110421, end: 20110501
  11. SOTALOL [Concomitant]
     Indication: BLOOD PRESSURE ABNORMAL
     Dosage: 80 MG, 2X/DAY
     Route: 048
  12. ASPIRIN [Concomitant]
     Indication: ANTIPLATELET THERAPY
     Dosage: 81 MG, DAILY
     Route: 048
  13. RAPAMUNE [Suspect]
     Dosage: 2 MG, DAILY
     Route: 048
     Dates: start: 20110501, end: 20110527
  14. TRICOR [Concomitant]
     Indication: BLOOD TRIGLYCERIDES ABNORMAL
     Dosage: 145 MG, DAILY
     Route: 048
  15. PLAVIX [Concomitant]
     Indication: CARDIOVASCULAR EVENT PROPHYLAXIS
     Dosage: 75 MG, DAILY
     Route: 048
  16. MYFORTIC [Concomitant]
     Dosage: 360 MG, 2X/DAY
     Route: 048
  17. NPH INSULIN [Concomitant]
     Indication: DIABETES MELLITUS
     Dosage: 10 IU, DAILY
  18. POTASSIUM [Concomitant]
     Indication: ROUTINE HEALTH MAINTENANCE
     Dosage: 20 MG, DAILY
     Route: 048
  19. RAPAMUNE [Suspect]
     Indication: PROPHYLAXIS AGAINST TRANSPLANT REJECTION
     Dosage: 8 MG, DAILY
     Route: 048
     Dates: start: 20110420, end: 20110420
  20. RANITIDINE [Concomitant]
     Indication: ABDOMINAL DISCOMFORT
     Dosage: 150 MG, 2X/DAY
     Route: 048

REACTIONS (4)
  - OEDEMA PERIPHERAL [None]
  - JOINT DISLOCATION [None]
  - BONE PAIN [None]
  - ARTHRALGIA [None]
